FAERS Safety Report 8536656-1 (Version None)
Quarter: 2012Q3

REPORT INFORMATION
  Report Type: 
  Country: None (occurrence: None)
  Receive Date: 20120718
  Receipt Date: 20120718
  Transmission Date: 20120928
  Serious: No
  Sender: FDA-Public Use
  Company Number: None

PATIENT
  Age: 22 Year
  Sex: Male
  Weight: 58.9676 kg

DRUGS (2)
  1. ZYPREXA [Suspect]
     Indication: OBSESSIVE-COMPULSIVE DISORDER
     Dosage: 1 TAB 1X PO
     Route: 048
     Dates: start: 20110901, end: 20120717
  2. ZYPREXA [Suspect]
     Indication: ANXIETY
     Dosage: 1 TAB 1X PO
     Route: 048
     Dates: start: 20110901, end: 20120717

REACTIONS (1)
  - UNEVALUABLE EVENT [None]
